FAERS Safety Report 8115517-6 (Version None)
Quarter: 2012Q1

REPORT INFORMATION
  Report Type: 
  Country: None (occurrence: None)
  Receive Date: 20120201
  Receipt Date: 20120119
  Transmission Date: 20120608
  Serious: Yes (Death)
  Sender: FDA-Public Use
  Company Number: UTC-014820

PATIENT
  Age: 76 Year
  Sex: Female
  Weight: 43.2 kg

DRUGS (2)
  1. TYVASO [Suspect]
     Indication: COR PULMONALE CHRONIC
     Dosage: 18-108 MICROGRAMS, INHALATION
     Route: 055
     Dates: start: 20100701
  2. REVATIO [Concomitant]

REACTIONS (1)
  - DEATH [None]
